FAERS Safety Report 24361189 (Version 2)
Quarter: 2024Q4

REPORT INFORMATION
  Report Type: Spontaneous
  Country: US (occurrence: US)
  Receive Date: 20240925
  Receipt Date: 20241001
  Transmission Date: 20250115
  Serious: No
  Sender: ROCHE
  Company Number: US-ROCHE-10000088236

PATIENT
  Age: 10 Year
  Sex: Male

DRUGS (4)
  1. XOLAIR PFS [Suspect]
     Active Substance: OMALIZUMAB
     Indication: Asthma
     Route: 058
  2. XOLAIR PFS [Suspect]
     Active Substance: OMALIZUMAB
  3. DUPIXENT [Interacting]
     Active Substance: DUPILUMAB
     Indication: Dermatitis atopic
     Route: 065
  4. DUPIXENT [Interacting]
     Active Substance: DUPILUMAB
     Indication: Eczema

REACTIONS (2)
  - Off label use [Unknown]
  - No adverse event [Unknown]
